FAERS Safety Report 18229322 (Version 9)
Quarter: 2021Q3

REPORT INFORMATION
  Report Type: Report from Study
  Country: IL (occurrence: IL)
  Receive Date: 20200903
  Receipt Date: 20210723
  Transmission Date: 20211014
  Serious: Yes (Hospitalization, Other)
  Sender: FDA-Public Use
  Company Number: IL-IPSEN BIOPHARMACEUTICALS, INC.-2019-24718

PATIENT
  Age: 55 Year
  Sex: Male

DRUGS (5)
  1. SOMATULINE AUTOGEL [Suspect]
     Active Substance: LANREOTIDE ACETATE
     Route: 058
  2. VITAMIN B12 [Suspect]
     Active Substance: CYANOCOBALAMIN
     Indication: PRODUCT USED FOR UNKNOWN INDICATION
     Route: 065
  3. COLCHICINE. [Suspect]
     Active Substance: COLCHICINE
     Indication: FAMILIAL MEDITERRANEAN FEVER
     Route: 065
  4. SOMATULINE AUTOGEL [Suspect]
     Active Substance: LANREOTIDE ACETATE
     Indication: NEUROENDOCRINE TUMOUR OF THE LUNG METASTATIC
     Route: 058
     Dates: start: 20190911
  5. SOMATULINE AUTOGEL [Suspect]
     Active Substance: LANREOTIDE ACETATE
     Route: 065
     Dates: start: 202103

REACTIONS (19)
  - Affective disorder [Unknown]
  - Coronavirus infection [Not Recovered/Not Resolved]
  - Upper respiratory tract infection [Unknown]
  - Chest pain [Unknown]
  - Abdominal pain [Recovering/Resolving]
  - Cough [Not Recovered/Not Resolved]
  - Eye pain [Not Recovered/Not Resolved]
  - Ligament rupture [Recovering/Resolving]
  - Disease progression [Unknown]
  - Liver function test increased [Unknown]
  - Feeling cold [Recovered/Resolved]
  - Diarrhoea [Not Recovered/Not Resolved]
  - Mass [Not Recovered/Not Resolved]
  - Fatigue [Unknown]
  - Hypoaesthesia [Unknown]
  - Chest pain [Recovered/Resolved]
  - Dysphagia [Not Recovered/Not Resolved]
  - Hypoaesthesia [Recovered/Resolved]
  - Off label use [Unknown]

NARRATIVE: CASE EVENT DATE: 20200827
